FAERS Safety Report 10364223 (Version 3)
Quarter: 2014Q3

REPORT INFORMATION
  Report Type: Spontaneous
  Country: FR (occurrence: FR)
  Receive Date: 20140806
  Receipt Date: 20140923
  Transmission Date: 20150326
  Serious: Yes (Other)
  Sender: FDA-Public Use
  Company Number: FR-BIOGENIDEC-2013BI064222

PATIENT
  Age: 45 Year
  Sex: Female
  Weight: 75 kg

DRUGS (7)
  1. LAMALINE [Concomitant]
     Active Substance: ACETAMINOPHEN\CAFFEINE\OPIUM
     Indication: PAIN
     Route: 048
     Dates: start: 20070726, end: 20130630
  2. MOVICOL [Concomitant]
     Active Substance: POLYETHYLENE GLYCOL 3350\POTASSIUM CHLORIDE\SODIUM BICARBONATE\SODIUM CHLORIDE
     Indication: CONSTIPATION
     Dates: start: 20121115, end: 20130630
  3. FAMPYRA [Concomitant]
     Active Substance: DALFAMPRIDINE
     Indication: GAIT DISTURBANCE
     Route: 048
     Dates: start: 20130402, end: 20130614
  4. PARACETAMOL [Concomitant]
     Active Substance: ACETAMINOPHEN
     Indication: PAIN
     Route: 048
     Dates: start: 20070725
  5. TYSABRI [Suspect]
     Active Substance: NATALIZUMAB
     Indication: MULTIPLE SCLEROSIS
     Route: 042
     Dates: start: 20120316, end: 20130606
  6. ANAFRANIL [Concomitant]
     Active Substance: CLOMIPRAMINE HYDROCHLORIDE
     Indication: PAIN
     Dates: start: 20121009, end: 20130630
  7. LYRICA [Concomitant]
     Active Substance: PREGABALIN
     Indication: PAIN
     Dates: start: 20070725, end: 20130630

REACTIONS (1)
  - Prolonged labour [Unknown]

NARRATIVE: CASE EVENT DATE: 20140220
